FAERS Safety Report 20478777 (Version 1)
Quarter: 2022Q1

REPORT INFORMATION
  Report Type: Spontaneous
  Country: US (occurrence: US)
  Receive Date: 20220216
  Receipt Date: 20220216
  Transmission Date: 20220423
  Serious: Yes (Hospitalization, Other)
  Sender: FDA-Public Use
  Company Number: US-AVET LIFESCIENCES LTD-2022-AVET-000028

PATIENT
  Age: 40 Year
  Sex: Female

DRUGS (1)
  1. ZONISAMIDE [Suspect]
     Active Substance: ZONISAMIDE
     Indication: Weight decreased
     Dosage: 300 MILLIGRAM DAILY

REACTIONS (3)
  - Toxic epidermal necrolysis [Unknown]
  - Delirium [Unknown]
  - Off label use [Unknown]
